FAERS Safety Report 14053862 (Version 2)
Quarter: 2019Q4

REPORT INFORMATION
  Report Type: Report from Study
  Country: US (occurrence: US)
  Receive Date: 20171006
  Receipt Date: 20191227
  Transmission Date: 20200122
  Serious: No
  Sender: FDA-Public Use
  Company Number: US-ROCHE-2002888

PATIENT
  Age: 39 Year
  Sex: Female
  Weight: 65.83 kg

DRUGS (1)
  1. OCREVUS [Suspect]
     Active Substance: OCRELIZUMAB
     Indication: MULTIPLE SCLEROSIS
     Dosage: MOST RECENT DOSE OF OCRELIZUMAB: 12/DEC/2019
     Route: 042
     Dates: start: 20170914

REACTIONS (5)
  - Pharyngeal swelling [Recovered/Resolved]
  - Throat irritation [Recovered/Resolved]
  - Oral candidiasis [Not Recovered/Not Resolved]
  - Oral disorder [Not Recovered/Not Resolved]
  - Oropharyngeal pain [Not Recovered/Not Resolved]

NARRATIVE: CASE EVENT DATE: 20170914
